FAERS Safety Report 6977979-7 (Version None)
Quarter: 2010Q3

REPORT INFORMATION
  Report Type: 
  Country: None (occurrence: None)
  Receive Date: 20100913
  Receipt Date: 20100903
  Transmission Date: 20110219
  Serious: Yes (Death, Hospitalization)
  Sender: FDA-Public Use
  Company Number: US-EISAI INC.-E7867-00159-CLI-US

PATIENT
  Age: 64 Year
  Sex: Male
  Weight: 79.7 kg

DRUGS (9)
  1. GLIADEL [Suspect]
     Indication: GLIOBLASTOMA
     Dosage: UNKNOWN
     Route: 018
     Dates: start: 20100812
  2. KEPPRA [Concomitant]
  3. FLOMAX [Concomitant]
  4. LOVENOX [Concomitant]
     Route: 058
  5. MULTI-VITAMIN [Concomitant]
  6. PROMETHAZINE [Concomitant]
  7. ATORVASTATIN [Concomitant]
  8. OXYCODONE [Concomitant]
  9. DECADRON [Concomitant]

REACTIONS (4)
  - HEADACHE [None]
  - INTRAVENTRICULAR HAEMORRHAGE [None]
  - PNEUMONIA ASPIRATION [None]
  - VOMITING [None]
